FAERS Safety Report 18744977 (Version 1)
Quarter: 2021Q1

REPORT INFORMATION
  Report Type: Spontaneous
  Country: FR (occurrence: FR)
  Receive Date: 20210115
  Receipt Date: 20210115
  Transmission Date: 20210419
  Serious: Yes (Death)
  Sender: FDA-Public Use
  Company Number: FR-TEVA-2021-FR-1868475

PATIENT
  Age: 49 Year
  Sex: Male

DRUGS (5)
  1. FLUOXETINE [Suspect]
     Active Substance: FLUOXETINE HYDROCHLORIDE
     Route: 065
     Dates: end: 2019
  2. METHADONE [Suspect]
     Active Substance: METHADONE HYDROCHLORIDE
     Indication: INTENTIONAL PRODUCT MISUSE
     Route: 065
     Dates: end: 2019
  3. COCAINE [Suspect]
     Active Substance: COCAINE
     Indication: DRUG DEPENDENCE
     Route: 065
     Dates: end: 2019
  4. OXAZEPAM. [Suspect]
     Active Substance: OXAZEPAM
     Route: 065
     Dates: end: 2019
  5. CYAMEMAZINE [Suspect]
     Active Substance: CYAMEMAZINE
     Route: 065
     Dates: end: 2019

REACTIONS (2)
  - Respiratory depression [Fatal]
  - Drug abuse [Fatal]
